FAERS Safety Report 21508855 (Version 1)
Quarter: 2022Q4

REPORT INFORMATION
  Report Type: Spontaneous
  Country: US (occurrence: US)
  Receive Date: 20221026
  Receipt Date: 20221026
  Transmission Date: 20230113
  Serious: No
  Sender: FDA-Public Use
  Company Number: US-ENDO PHARMACEUTICALS INC-2022-005254

PATIENT
  Age: 33 Year

DRUGS (3)
  1. QWO [Suspect]
     Active Substance: COLLAGENASE CLOSTRIDIUM HISTOLYTICUM-AAES
     Indication: Product used for unknown indication
     Dosage: UNK UNKNOWN, UNKNOWN (TREATMENT ONE, 24 DIMPLES, EACH DIMPLE INJECTED 0.3 ML OF QWO)
     Route: 065
     Dates: start: 20211027
  2. QWO [Suspect]
     Active Substance: COLLAGENASE CLOSTRIDIUM HISTOLYTICUM-AAES
     Dosage: UNK UNKNOWN, UNKNOWN (TREATMENT TWO, 24 DIMPLES, EACH DIMPLE INJECTED 0.3 ML OF QWO)
     Route: 065
     Dates: start: 20211118
  3. QWO [Suspect]
     Active Substance: COLLAGENASE CLOSTRIDIUM HISTOLYTICUM-AAES
     Dosage: UNK UNKNOWN, UNKNOWN (TREATMENT THREE, 22 DIMPLES, EACH DIMPLE INJECTED 0.3 ML OF QWO)
     Route: 065
     Dates: start: 20211214

REACTIONS (3)
  - Contusion [Unknown]
  - Skin discolouration [Unknown]
  - Inappropriate schedule of product administration [Unknown]
